FAERS Safety Report 7529956-5 (Version None)
Quarter: 2011Q2

REPORT INFORMATION
  Report Type: 
  Country: None (occurrence: None)
  Receive Date: 20110606
  Receipt Date: 20110606
  Transmission Date: 20111010
  Serious: Yes (Hospitalization)
  Sender: FDA-Public Use
  Company Number: None

PATIENT
  Age: 61 Year
  Sex: Female
  Weight: 72.5755 kg

DRUGS (1)
  1. MARCAINE [Suspect]
     Indication: SPINAL ANAESTHESIA
     Dosage: 1ML ONCE INTRADISCAL
     Route: 024
     Dates: start: 20110602, end: 20110602

REACTIONS (3)
  - TREATMENT FAILURE [None]
  - UNWANTED AWARENESS DURING ANAESTHESIA [None]
  - INADEQUATE ANALGESIA [None]
